FAERS Safety Report 24982613 (Version 1)
Quarter: 2025Q1

REPORT INFORMATION
  Report Type: Spontaneous
  Country: GB (occurrence: GB)
  Receive Date: 20250218
  Receipt Date: 20250218
  Transmission Date: 20250409
  Serious: Yes (Other)
  Sender: ELI LILLY AND COMPANY
  Company Number: None

PATIENT
  Age: 40 Year
  Sex: Female

DRUGS (3)
  1. MOUNJARO [Suspect]
     Active Substance: TIRZEPATIDE
     Indication: Product used for unknown indication
     Route: 065
     Dates: start: 20241018, end: 20250206
  2. NITROFURANTOIN [Concomitant]
     Active Substance: NITROFURANTOIN
     Indication: Urinary tract infection
     Route: 065
  3. CO-AMOXICLAV [AMOXICILLIN TRIHYDRATE;CLAVULAN [Concomitant]
     Indication: Urinary tract infection
     Route: 065

REACTIONS (3)
  - Raynaud^s phenomenon [Not Recovered/Not Resolved]
  - Pruritus [Not Recovered/Not Resolved]
  - Fungal foot infection [Unknown]

NARRATIVE: CASE EVENT DATE: 20241230
